APPROVED DRUG PRODUCT: AMOXICILLIN AND CLAVULANATE POTASSIUM
Active Ingredient: AMOXICILLIN; CLAVULANATE POTASSIUM
Strength: 250MG;EQ 125MG BASE
Dosage Form/Route: TABLET;ORAL
Application: A091569 | Product #001 | TE Code: AB
Applicant: AUROBINDO PHARMA LTD
Approved: Jan 20, 2012 | RLD: No | RS: No | Type: RX